FAERS Safety Report 10164354 (Version 2)
Quarter: 2014Q2

REPORT INFORMATION
  Report Type: Spontaneous
  Country: US (occurrence: US)
  Receive Date: 20140510
  Receipt Date: 20140510
  Transmission Date: 20141212
  Serious: Yes (Other)
  Sender: FDA-Public Use
  Company Number: US-BRISTOL-MYERS SQUIBB COMPANY-20071395

PATIENT
  Age: 75 Year
  Sex: Female

DRUGS (2)
  1. BYDUREON [Suspect]
     Route: 058
  2. GLUCOPHAGE [Concomitant]

REACTIONS (3)
  - Weight decreased [Unknown]
  - Vomiting [Unknown]
  - Malaise [Unknown]
